FAERS Safety Report 17687332 (Version 1)
Quarter: 2020Q2

REPORT INFORMATION
  Report Type: Spontaneous
  Country: CN (occurrence: CN)
  Receive Date: 20200421
  Receipt Date: 20200421
  Transmission Date: 20200714
  Serious: Yes (Other)
  Sender: FDA-Public Use
  Company Number: CN-BAXTER-2020BAX008361

PATIENT
  Age: 74 Year
  Sex: Male
  Weight: 60 kg

DRUGS (8)
  1. ENDOXAN [Suspect]
     Active Substance: CYCLOPHOSPHAMIDE
     Indication: DIFFUSE LARGE B-CELL LYMPHOMA
     Dosage: CYCLOPHOSPHAMIDE 1.2 G + 0.9% NS 40ML, TUMOR CHEMICAL DEVICE
     Route: 042
     Dates: start: 20200319, end: 20200319
  2. 0.9% SODIUM CHLORIDE INJECTION [Suspect]
     Active Substance: SODIUM CHLORIDE
     Indication: MEDICATION DILUTION
     Dosage: CYCLOPHOSPHAMIDE 1.2 G + 0.9% NS 40ML, TUMOR CHEMICAL DEVICE
     Route: 042
     Dates: start: 20200319, end: 20200319
  3. 5% GLUCOSE  INJECTION [Suspect]
     Active Substance: DEXTROSE
     Indication: MEDICATION DILUTION
     Dosage: RITUXIMAB 600 MG + 5% GS 600ML, TUMOR CHEMICAL DEVICE
     Route: 041
     Dates: start: 20200318, end: 20200318
  4. DOXORUBICIN HYDROCHLORIDE. [Suspect]
     Active Substance: DOXORUBICIN HYDROCHLORIDE
     Indication: DIFFUSE LARGE B-CELL LYMPHOMA
     Dosage: DOXORUBICIN HYDROCHLORIDE 60 MG + 0.9% NS 40 ML, TUMOR CHEMICAL DEVICE
     Route: 042
     Dates: start: 20200319, end: 20200319
  5. 0.9% SODIUM CHLORIDE INJECTION [Suspect]
     Active Substance: SODIUM CHLORIDE
     Dosage: DOXORUBICIN HYDROCHLORIDE 60 MG + 0.9% NS 40 ML, TUMOR CHEMICAL DEVICE
     Route: 042
     Dates: start: 20200319, end: 20200319
  6. RITUXIMAB. [Suspect]
     Active Substance: RITUXIMAB
     Indication: DIFFUSE LARGE B-CELL LYMPHOMA
     Dosage: RITUXIMAB 600 MG + 5% GS 600ML, TUMOR CHEMICAL DEVICE
     Route: 041
     Dates: start: 20200318, end: 20200318
  7. VINCRISTINE SULFATE. [Suspect]
     Active Substance: VINCRISTINE SULFATE
     Indication: DIFFUSE LARGE B-CELL LYMPHOMA
     Dosage: VINCRISTINE SULFATE 2 MG + 0.9% NS 40ML, TUMOR CHEMICAL DEVICE
     Route: 042
     Dates: start: 20200319, end: 20200319
  8. 0.9% SODIUM CHLORIDE INJECTION [Suspect]
     Active Substance: SODIUM CHLORIDE
     Dosage: VINCRISTINE SULFATE 2 MG + 0.9% NS 40ML, TUMOR CHEMICAL DEVICE
     Route: 042
     Dates: start: 20200319, end: 20200319

REACTIONS (2)
  - White blood cell count decreased [Recovered/Resolved]
  - Neutrophil count decreased [Recovered/Resolved]

NARRATIVE: CASE EVENT DATE: 20200330
